FAERS Safety Report 7778314-7 (Version None)
Quarter: 2011Q3

REPORT INFORMATION
  Report Type: 
  Country: None (occurrence: None)
  Receive Date: 20110926
  Receipt Date: 20110913
  Transmission Date: 20111222
  Serious: Yes (Hospitalization)
  Sender: FDA-Public Use
  Company Number: US-BAYER-201018996NA

PATIENT
  Age: 25 Year
  Sex: Female
  Weight: 63 kg

DRUGS (3)
  1. YAZ [Suspect]
     Dosage: AS USED DOSE: UNK
     Route: 048
     Dates: start: 20080226, end: 20080718
  2. ZYRTEC [Concomitant]
     Dosage: 10 MG, QD
  3. BENICAR [Concomitant]
     Dosage: 20 MG, QD
     Route: 048

REACTIONS (5)
  - CEREBROVASCULAR ACCIDENT [None]
  - DEPRESSION [None]
  - AMNESIA [None]
  - APHASIA [None]
  - SELF ESTEEM DECREASED [None]
